FAERS Safety Report 11726909 (Version 2)
Quarter: 2015Q4

REPORT INFORMATION
  Report Type: Spontaneous
  Country: KR (occurrence: KR)
  Receive Date: 20151112
  Receipt Date: 20151112
  Transmission Date: 20160304
  Serious: Yes (Hospitalization, Other)
  Sender: FDA-Public Use
  Company Number: KR-ACTAVIS-2015-23954

PATIENT
  Age: 62 Year
  Sex: Male

DRUGS (12)
  1. PHENYTOIN (AMALLC) [Suspect]
     Active Substance: PHENYTOIN
     Indication: PARTIAL SEIZURES
     Dosage: 300 MG, DAILY
     Route: 065
  2. AMITRIPTYLINE (UNKNOWN) [Suspect]
     Active Substance: AMITRIPTYLINE
     Indication: PERSONALITY CHANGE
  3. CLONAZEPAM (UNKNOWN) [Suspect]
     Active Substance: CLONAZEPAM
     Indication: AGGRESSION
     Dosage: 1 MG, DAILY
     Route: 065
  4. AMITRIPTYLINE (UNKNOWN) [Suspect]
     Active Substance: AMITRIPTYLINE
     Indication: AGGRESSION
     Dosage: 35 MG, DAILY
     Route: 065
  5. CLONAZEPAM (UNKNOWN) [Suspect]
     Active Substance: CLONAZEPAM
     Indication: PERSONALITY CHANGE
  6. SULPIRIDE [Suspect]
     Active Substance: SULPIRIDE
     Indication: PERSONALITY CHANGE
  7. SULPIRIDE [Suspect]
     Active Substance: SULPIRIDE
     Indication: AGGRESSION
     Dosage: 400 MG, DAILY
     Route: 065
  8. PERPHENAZINE. [Suspect]
     Active Substance: PERPHENAZINE
     Indication: PERSONALITY CHANGE
  9. LORAZEPAM (UNKNOWN) [Suspect]
     Active Substance: LORAZEPAM
     Indication: AGGRESSION
     Dosage: 1 MG, DAILY
     Route: 065
  10. LORAZEPAM (UNKNOWN) [Suspect]
     Active Substance: LORAZEPAM
     Indication: PERSONALITY CHANGE
  11. PHENYTOIN (AMALLC) [Suspect]
     Active Substance: PHENYTOIN
     Dosage: UNK,LOADING DOSE
     Route: 065
  12. PERPHENAZINE. [Suspect]
     Active Substance: PERPHENAZINE
     Indication: AGGRESSION
     Dosage: 4 MG, DAILY
     Route: 065

REACTIONS (2)
  - Parkinsonism [Recovered/Resolved]
  - Neuroleptic malignant syndrome [Recovered/Resolved]
